FAERS Safety Report 4438580-2 (Version None)
Quarter: 2004Q3

REPORT INFORMATION
  Report Type: 
  Country: None (occurrence: None)
  Receive Date: 20040728
  Receipt Date: 20040302
  Transmission Date: 20050211
  Serious: No
  Sender: FDA-Public Use
  Company Number: USA040360744

PATIENT
  Age: 52 Year
  Sex: Male
  Weight: 109 kg

DRUGS (3)
  1. STRATTERA [Suspect]
     Indication: ATTENTION DEFICIT/HYPERACTIVITY DISORDER
     Dosage: 80 MG IN THE MORNING
     Dates: start: 20030501
  2. LEXAPRO [Concomitant]
  3. ZOLOFT [Concomitant]

REACTIONS (2)
  - URINARY HESITATION [None]
  - URINE FLOW DECREASED [None]
